FAERS Safety Report 5123353-8 (Version None)
Quarter: 2006Q4

REPORT INFORMATION
  Report Type: 
  Country: None (occurrence: None)
  Receive Date: 20061005
  Receipt Date: 20060925
  Transmission Date: 20070319
  Serious: Yes (Hospitalization)
  Sender: FDA-Public Use
  Company Number: FR-2006-028785

PATIENT
  Age: 53 Year
  Sex: Male

DRUGS (3)
  1. SOTALOL HYDROCHLORIDE [Suspect]
     Dates: start: 20010615, end: 20011115
  2. PRAVASTATIN [Concomitant]
  3. ASPIRIN [Concomitant]

REACTIONS (4)
  - ANAPHYLACTIC SHOCK [None]
  - ANGIONEUROTIC OEDEMA [None]
  - CONDITION AGGRAVATED [None]
  - HYPERSENSITIVITY [None]
